FAERS Safety Report 5737190-4 (Version None)
Quarter: 2008Q2

REPORT INFORMATION
  Report Type: 
  Country: None (occurrence: None)
  Receive Date: 20080514
  Receipt Date: 20080506
  Transmission Date: 20081010
  Serious: Yes (Other)
  Sender: FDA-Public Use
  Company Number: US-JNJFOC-20080502289

PATIENT
  Sex: Female

DRUGS (3)
  1. MOTRIN [Suspect]
     Indication: PAIN MANAGEMENT
  2. PERCOCET [Concomitant]
     Indication: DRUG USE FOR UNKNOWN INDICATION
  3. MUSCLE RELAXANTS [Concomitant]

REACTIONS (6)
  - BLOOD CALCIUM DECREASED [None]
  - BLOOD CORTISOL DECREASED [None]
  - OEDEMA PERIPHERAL [None]
  - PAIN [None]
  - SWELLING FACE [None]
  - VITAMIN D DECREASED [None]
